FAERS Safety Report 8453592-X (Version None)
Quarter: 2012Q2

REPORT INFORMATION
  Report Type: 
  Country: None (occurrence: None)
  Receive Date: 20120620
  Receipt Date: 20120613
  Transmission Date: 20120825
  Serious: Yes (Life-Threatening)
  Sender: FDA-Public Use
  Company Number: CA-MERCK-1206USA02143

PATIENT
  Age: 41 Year
  Sex: Male

DRUGS (3)
  1. ZANTAC [Concomitant]
     Route: 065
  2. SINGULAIR [Suspect]
     Route: 048
  3. CETIRIZINE HCL [Concomitant]
     Route: 065

REACTIONS (2)
  - DEPRESSION [None]
  - SUICIDAL IDEATION [None]
